FAERS Safety Report 17896696 (Version 2)
Quarter: 2020Q3

REPORT INFORMATION
  Report Type: Report from Study
  Country: IN (occurrence: IN)
  Receive Date: 20200615
  Receipt Date: 20200916
  Transmission Date: 20201103
  Serious: Yes (Death, Other)
  Sender: FDA-Public Use
  Company Number: NVSC2020IN165343

PATIENT
  Age: 49 Year
  Sex: Male

DRUGS (1)
  1. REVOLADE [Suspect]
     Active Substance: ELTROMBOPAG
     Indication: APLASTIC ANAEMIA
     Dosage: 150 MG, QD
     Route: 048
     Dates: start: 20200415

REACTIONS (4)
  - Aplastic anaemia [Fatal]
  - Diarrhoea [Unknown]
  - Pyrexia [Unknown]
  - Disease progression [Fatal]

NARRATIVE: CASE EVENT DATE: 20200608
